FAERS Safety Report 16490196 (Version 1)
Quarter: 2019Q2

REPORT INFORMATION
  Report Type: Spontaneous
  Country: US (occurrence: US)
  Receive Date: 20190518
  Receipt Date: 20190518
  Transmission Date: 20190711
  Serious: No
  Sender: FDA-Public Use
  Company Number: None

PATIENT
  Age: 57 Year
  Sex: Female

DRUGS (2)
  1. SUTENT [Suspect]
     Active Substance: SUNITINIB MALATE
     Route: 048
     Dates: start: 20190516
  2. ONDANESTRON [Concomitant]

REACTIONS (3)
  - Hypertension [None]
  - Fatigue [None]
  - Heart rate increased [None]

NARRATIVE: CASE EVENT DATE: 20190517
